FAERS Safety Report 24280402 (Version 1)
Quarter: 2024Q3

REPORT INFORMATION
  Report Type: Spontaneous
  Country: PT (occurrence: PT)
  Receive Date: 20240904
  Receipt Date: 20240904
  Transmission Date: 20241017
  Serious: Yes (Life-Threatening)
  Sender: AUROBINDO
  Company Number: PT-INFARMED-T202408-393

PATIENT
  Age: 48 Year
  Sex: Female

DRUGS (1)
  1. DOCETAXEL [Suspect]
     Active Substance: DOCETAXEL\DOCETAXEL ANHYDROUS
     Indication: Product used for unknown indication
     Dosage: 138 MILLIGRAM [^138MG^ (^256,9ML^)  ]
     Route: 042
     Dates: start: 20240809

REACTIONS (3)
  - Flushing [Recovering/Resolving]
  - Hyperhidrosis [Recovering/Resolving]
  - Visual impairment [Recovering/Resolving]

NARRATIVE: CASE EVENT DATE: 20240809
